FAERS Safety Report 14373370 (Version 1)
Quarter: 2018Q1

REPORT INFORMATION
  Report Type: Spontaneous
  Country: US (occurrence: US)
  Receive Date: 20180109
  Receipt Date: 20180109
  Transmission Date: 20180509
  Serious: Yes (Other)
  Sender: FDA-Public Use
  Company Number: None

PATIENT
  Age: 3 Year
  Sex: Female
  Weight: 18.2 kg

DRUGS (1)
  1. JADENU [Suspect]
     Active Substance: DEFERASIROX
     Indication: GASTROOESOPHAGEAL REFLUX DISEASE
     Dosage: 180 MG, 3 TABLET DAILY, BY MOUTH
     Route: 048
     Dates: start: 20160329

REACTIONS (3)
  - Epistaxis [None]
  - Trichorrhexis [None]
  - Hair texture abnormal [None]

NARRATIVE: CASE EVENT DATE: 20171028
